FAERS Safety Report 13044691 (Version 1)
Quarter: 2016Q4

REPORT INFORMATION
  Report Type: Spontaneous
  Country: US (occurrence: US)
  Receive Date: 20161220
  Receipt Date: 20161220
  Transmission Date: 20170207
  Serious: No
  Sender: FDA-Public Use
  Company Number: US-ROCHE-1046488

PATIENT
  Age: 53 Year
  Sex: Female
  Weight: 103.51 kg

DRUGS (2)
  1. STEROIDS - UNKNOWN TYPE [Concomitant]
     Indication: HYPOAESTHESIA
     Route: 048
  2. ZELBORAF [Suspect]
     Active Substance: VEMURAFENIB
     Indication: METASTATIC MALIGNANT MELANOMA
     Route: 048
     Dates: start: 201203

REACTIONS (12)
  - Swelling face [Recovered/Resolved]
  - Myalgia [Unknown]
  - Sunburn [Unknown]
  - Arthralgia [Unknown]
  - Alopecia [Unknown]
  - Hypoaesthesia [Not Recovered/Not Resolved]
  - Erythema [Unknown]
  - Nausea [Unknown]
  - Diarrhoea [Unknown]
  - Headache [Unknown]
  - Erythema [Recovered/Resolved]
  - Rash [Unknown]

NARRATIVE: CASE EVENT DATE: 201204
